FAERS Safety Report 24544806 (Version 3)
Quarter: 2025Q1

REPORT INFORMATION
  Report Type: Spontaneous
  Country: CO (occurrence: CO)
  Receive Date: 20241024
  Receipt Date: 20250115
  Transmission Date: 20250409
  Serious: Yes (Death, Hospitalization, Other)
  Sender: HRA PHARMA
  Company Number: CO-ORG100014127-2024000084

PATIENT
  Age: 15 Year
  Sex: Female
  Weight: 36 kg

DRUGS (5)
  1. LYSODREN [Suspect]
     Active Substance: MITOTANE
     Indication: Adrenocortical carcinoma
     Dosage: DURATION: 2 YEARS AND 4 MONTHS.
     Route: 048
     Dates: start: 20221122, end: 20240328
  2. LYSODREN [Suspect]
     Active Substance: MITOTANE
     Indication: Adrenocortical carcinoma
     Route: 048
     Dates: start: 20240411, end: 202405
  3. LEVOTHYROXINE [Concomitant]
     Active Substance: LEVOTHYROXINE
     Indication: Product used for unknown indication
     Dates: start: 202304
  4. Hydrocortisone 40 mg [Concomitant]
     Indication: Product used for unknown indication
     Dates: start: 202211
  5. Hydrocortisone 40 mg [Concomitant]
     Indication: Product used for unknown indication
     Dates: start: 2024

REACTIONS (3)
  - Syncope [Unknown]
  - Malignant neoplasm progression [Fatal]
  - Hypothyroidism [Unknown]

NARRATIVE: CASE EVENT DATE: 20240318
